FAERS Safety Report 25603900 (Version 1)
Quarter: 2025Q3

REPORT INFORMATION
  Report Type: Spontaneous
  Country: IL (occurrence: IL)
  Receive Date: 20250725
  Receipt Date: 20250725
  Transmission Date: 20251021
  Serious: Yes (Other)
  Sender: ALKEM
  Company Number: IL-ALKEM LABORATORIES LIMITED-IL-ALKEM-2025-07934

PATIENT
  Age: 3 Year

DRUGS (2)
  1. LEVETIRACETAM [Suspect]
     Active Substance: LEVETIRACETAM
     Indication: Epilepsy
     Dosage: 30 MILLIGRAM/KILOGRAM, QD
     Route: 065
  2. LEVETIRACETAM [Suspect]
     Active Substance: LEVETIRACETAM
     Indication: Epilepsy with myoclonic-atonic seizures

REACTIONS (2)
  - Myoclonic epilepsy [Unknown]
  - Status epilepticus [Unknown]
